FAERS Safety Report 8059165-5 (Version None)
Quarter: 2012Q1

REPORT INFORMATION
  Report Type: 
  Country: None (occurrence: None)
  Receive Date: 20120120
  Receipt Date: 20110405
  Transmission Date: 20120608
  Serious: No
  Sender: FDA-Public Use
  Company Number: US-BRISTOL-MYERS SQUIBB COMPANY-15639099

PATIENT
  Sex: Female

DRUGS (2)
  1. TAXOL [Concomitant]
     Indication: OVARIAN CANCER
  2. CISPLATIN [Suspect]
     Indication: OVARIAN CANCER
     Dosage: 1.75L OF FLUID INCLUDING CISPLATIN
     Route: 030
     Dates: start: 20110301

REACTIONS (2)
  - INJECTION SITE PAIN [None]
  - DRUG ADMINISTRATION ERROR [None]
